FAERS Safety Report 4382098-2 (Version None)
Quarter: 2004Q2

REPORT INFORMATION
  Report Type: 
  Country: None (occurrence: None)
  Receive Date: 20040615
  Receipt Date: 20040602
  Transmission Date: 20050107
  Serious: Yes (Hospitalization)
  Sender: FDA-Public Use
  Company Number: 04P-163-0262532-00

PATIENT
  Age: 82 Year
  Sex: Female

DRUGS (5)
  1. HUMIRA [Suspect]
     Indication: RHEUMATOID ARTHRITIS
     Dosage: 40 MG SUBCUTANEOUS
     Route: 058
     Dates: start: 20040301, end: 20040512
  2. PREDNISONE [Concomitant]
  3. RALOXIFENE HCL [Concomitant]
  4. LEVOTHYROXINE SODIUM [Concomitant]
  5. DILTIAZEM [Concomitant]

REACTIONS (4)
  - BLOOD PRESSURE INCREASED [None]
  - CONDITION AGGRAVATED [None]
  - EPISTAXIS [None]
  - RESPIRATORY TRACT CONGESTION [None]
